FAERS Safety Report 7653337-7 (Version None)
Quarter: 2011Q3

REPORT INFORMATION
  Report Type: 
  Country: None (occurrence: None)
  Receive Date: 20110803
  Receipt Date: 20110801
  Transmission Date: 20111222
  Serious: Yes (Life-Threatening, Hospitalization, Other)
  Sender: FDA-Public Use
  Company Number: DE-PFIZER INC-2011174142

PATIENT
  Age: 50 Year
  Sex: Female

DRUGS (4)
  1. VENLAFAXINE HCL [Suspect]
     Indication: DEPRESSION
     Dosage: 150 MG, 1X/DAY
     Route: 048
     Dates: start: 20110226, end: 20110413
  2. LITHIUM CARBONATE [Suspect]
     Dosage: 1125 MG, 1X/DAY
     Route: 048
     Dates: start: 20110225, end: 20110412
  3. LYRICA [Suspect]
     Dosage: 75 MG, 1X/DAY
     Route: 048
     Dates: start: 20110225, end: 20110411
  4. DIPIPERON [Suspect]
     Dosage: 40 MG, 1X/DAY
     Route: 048
     Dates: start: 20110407, end: 20110411

REACTIONS (1)
  - ELECTROCARDIOGRAM QT PROLONGED [None]
